FAERS Safety Report 23577855 (Version 1)
Quarter: 2024Q1

REPORT INFORMATION
  Report Type: Spontaneous
  Country: IT (occurrence: IT)
  Receive Date: 20240228
  Receipt Date: 20240228
  Transmission Date: 20240410
  Serious: Yes (Other)
  Sender: FDA-Public Use
  Company Number: IT-DOCGEN-1901951

PATIENT
  Age: 3 Year
  Sex: Female
  Weight: 15 kg

DRUGS (6)
  1. VORICONAZOLE [Suspect]
     Active Substance: VORICONAZOLE
     Indication: Aspergillus infection
     Dosage: 19 MG/KG, Q12H/19 MILLIGRAM/KILOGRAM, BID
     Route: 042
  2. VORICONAZOLE [Suspect]
     Active Substance: VORICONAZOLE
     Indication: Bronchopulmonary aspergillosis
     Dosage: 8 MG/KG, Q12H FIRST-LINE ANTIFUNGAL TREATMENT; AS MAINTENANCE DOSE/ 8 MILLIGRAM/KILOGRAM, BID FIRST
     Route: 042
  3. VORICONAZOLE [Suspect]
     Active Substance: VORICONAZOLE
     Indication: Cerebral aspergillosis
     Dosage: 9 MG/KG, Q12H FIRST-LINE ANTIFUNGAL TREATMENT; LOADING DOSE/ 9 MILLIGRAM/KILOGRAM, BID FIRST
     Route: 042
  4. AMPHOTERICIN B [Concomitant]
     Active Substance: AMPHOTERICIN B
     Indication: Bronchopulmonary aspergillosis
     Dosage: 3 MG/KG, Q24H
     Route: 065
  5. ISAVUCONAZOLE [Concomitant]
     Active Substance: ISAVUCONAZOLE
     Indication: Bronchopulmonary aspergillosis
     Dosage: MAINTENANCE DOSE, 100 MG QD
     Route: 042
  6. ISAVUCONAZOLE [Concomitant]
     Active Substance: ISAVUCONAZOLE
     Dosage: LOADING DOSE, 100 MG Q8H
     Route: 042

REACTIONS (3)
  - Drug ineffective [Unknown]
  - Drug level below therapeutic [Not Recovered/Not Resolved]
  - Treatment failure [Unknown]
